FAERS Safety Report 25065430 (Version 4)
Quarter: 2025Q2

REPORT INFORMATION
  Report Type: Spontaneous
  Country: JP (occurrence: JP)
  Receive Date: 20250311
  Receipt Date: 20250408
  Transmission Date: 20250717
  Serious: Yes (Hospitalization)
  Sender: MERCK SHARP AND DOHME
  Company Number: JP-009507513-2255036

PATIENT
  Age: 69 Year
  Sex: Female
  Weight: 53 kg

DRUGS (6)
  1. LAGEVRIO [Suspect]
     Active Substance: MOLNUPIRAVIR
     Indication: COVID-19 treatment
     Route: 048
     Dates: start: 20250102, end: 20250107
  2. AZELNIDIPINE\OLMESARTAN MEDOXOMIL [Concomitant]
     Active Substance: AZELNIDIPINE\OLMESARTAN MEDOXOMIL
  3. Tradiance Combination Tablets AP [Concomitant]
     Dosage: 1XM(MORNING)
  4. METFORMIN HYDROCHLORIDE [Concomitant]
     Active Substance: METFORMIN HYDROCHLORIDE
     Dosage: METFORMIN HYDROCHLORIDE 250MG 6T 2XMA(MORNING, AFTERNOON)
  5. URSO 100mg [Concomitant]
     Indication: Cholangitis
     Dates: start: 20240606
  6. Takecab 10mg [Concomitant]
     Indication: Gastrooesophageal reflux disease
     Dates: start: 20231230, end: 20250213

REACTIONS (2)
  - Leukaemia [Not Recovered/Not Resolved]
  - Neutrophil count decreased [Not Recovered/Not Resolved]

NARRATIVE: CASE EVENT DATE: 20250108
